FAERS Safety Report 4295121-0 (Version None)
Quarter: 2004Q1

REPORT INFORMATION
  Report Type: 
  Country: None (occurrence: None)
  Receive Date: 20040212
  Receipt Date: 20040203
  Transmission Date: 20041129
  Serious: Yes (Death)
  Sender: FDA-Public Use
  Company Number: US-JNJFOC-20030905768

PATIENT
  Age: 84 Year
  Sex: Male

DRUGS (10)
  1. RISPERDAL [Suspect]
     Indication: AGGRESSION
     Dosage: SEE IMAGE
     Route: 048
     Dates: start: 20021024
  2. RISPERDAL [Suspect]
     Indication: AGITATION
     Dosage: SEE IMAGE
     Route: 048
     Dates: start: 20021024
  3. RISPERDAL [Suspect]
     Indication: AGGRESSION
     Dosage: SEE IMAGE
     Route: 048
     Dates: start: 20030109
  4. RISPERDAL [Suspect]
     Indication: AGITATION
     Dosage: SEE IMAGE
     Route: 048
     Dates: start: 20030109
  5. COUMADIN [Concomitant]
  6. ATROVENT (INHALATION) IPRATROPIUM BROMIDE [Concomitant]
  7. PEPCID [Concomitant]
  8. LANOXAN (DIGOXIN) [Concomitant]
  9. DIFLUCAN [Concomitant]
  10. LASIX [Concomitant]

REACTIONS (15)
  - AORTIC VALVE INCOMPETENCE [None]
  - ATRIAL FIBRILLATION [None]
  - COMA [None]
  - DEMENTIA ALZHEIMER'S TYPE [None]
  - DIASTOLIC DYSFUNCTION [None]
  - DILATATION ATRIAL [None]
  - ELECTROCARDIOGRAM T WAVE ABNORMAL [None]
  - MITRAL VALVE INCOMPETENCE [None]
  - PERICARDIAL EFFUSION [None]
  - PLEURAL CALCIFICATION [None]
  - PLEURAL EFFUSION [None]
  - PNEUMONIA ASPIRATION [None]
  - RESPIRATORY DISTRESS [None]
  - SEPSIS [None]
  - VENTRICULAR HYPERTROPHY [None]
